FAERS Safety Report 12638446 (Version 1)
Quarter: 2016Q3

REPORT INFORMATION
  Report Type: Spontaneous
  Country: US (occurrence: US)
  Receive Date: 20160809
  Receipt Date: 20160809
  Transmission Date: 20161109
  Serious: No
  Sender: FDA-Public Use
  Company Number: US-SA-2016SA128782

PATIENT
  Age: 65 Year
  Sex: Female

DRUGS (18)
  1. PRALUENT [Suspect]
     Active Substance: ALIROCUMAB
     Route: 058
  2. COLCRYS [Concomitant]
     Active Substance: COLCHICINE
  3. KETOROLAC [Concomitant]
     Active Substance: KETOROLAC\KETOROLAC TROMETHAMINE
  4. SYNTHROID [Concomitant]
     Active Substance: LEVOTHYROXINE SODIUM
  5. METFORMIN [Concomitant]
     Active Substance: METFORMIN HYDROCHLORIDE
  6. NITROSTAT [Concomitant]
     Active Substance: NITROGLYCERIN
     Dosage: SUB
  7. EFFIENT [Concomitant]
     Active Substance: PRASUGREL HYDROCHLORIDE
  8. PANTOPRAZOLE [Concomitant]
     Active Substance: PANTOPRAZOLE SODIUM
  9. AZITHROMYCIN ANHYDROUS. [Concomitant]
     Active Substance: AZITHROMYCIN ANHYDROUS
  10. BACLOFEN. [Concomitant]
     Active Substance: BACLOFEN
  11. ALIROCUMAB PREFILLED PEN [Concomitant]
     Active Substance: ALIROCUMAB
  12. FUROSEMIDE. [Concomitant]
     Active Substance: FUROSEMIDE
  13. LORAZEPAM. [Concomitant]
     Active Substance: LORAZEPAM
  14. PREDNISONE. [Concomitant]
     Active Substance: PREDNISONE
  15. TOPIRAMATE. [Concomitant]
     Active Substance: TOPIRAMATE
  16. ZETIA [Concomitant]
     Active Substance: EZETIMIBE
  17. AMLODIPINE [Concomitant]
     Active Substance: AMLODIPINE BESYLATE
  18. DIAZEPAM. [Concomitant]
     Active Substance: DIAZEPAM

REACTIONS (1)
  - Muscle spasms [Not Recovered/Not Resolved]
